FAERS Safety Report 7902116-1 (Version None)
Quarter: 2011Q4

REPORT INFORMATION
  Report Type: 
  Country: None (occurrence: None)
  Receive Date: 20111108
  Receipt Date: 20111027
  Transmission Date: 20120403
  Serious: Yes (Hospitalization)
  Sender: FDA-Public Use
  Company Number: JP-UCBSA-044787

PATIENT
  Age: 53 Year
  Sex: Female

DRUGS (12)
  1. IMIDAPRIL HYDROCHLORIDE [Concomitant]
  2. INDAPAMIDE [Concomitant]
  3. PREDNISOLONE [Concomitant]
     Dosage: 3 MG DAILY
  4. ALPROSTADIL ALFADEX [Concomitant]
     Dosage: ADEQUATE DOSE AS NEEDED
     Dates: start: 20110915
  5. KETOPROFEN [Concomitant]
     Dosage: ADEQUATE DOSE AS NEEDED
  6. AMLODIPINE BESYLATE [Concomitant]
  7. FERROUS CITRATE [Concomitant]
     Dates: start: 20110120
  8. BETAMETHASONE SODIUM PHOSPHATE [Concomitant]
     Dosage: ADEQUATE DOSE AS NEEDED
  9. CERTOLIZUMAB PEGOL [Suspect]
     Indication: RHEUMATOID ARTHRITIS
     Route: 058
  10. LOXOPROFEN SODIUM HYDRATE [Concomitant]
     Dosage: 180 MG DAILY
  11. ALDIOXA [Concomitant]
     Dosage: ADEQUATE DOSE AS NEEDED
     Dates: start: 20110707
  12. TACROLIMUS [Concomitant]
     Dosage: 1.5 MG DAILY

REACTIONS (1)
  - INTESTINAL HAEMORRHAGE [None]
